FAERS Safety Report 5915563-4 (Version None)
Quarter: 2008Q4

REPORT INFORMATION
  Report Type: 
  Country: None (occurrence: None)
  Receive Date: 20081010
  Receipt Date: 20080805
  Transmission Date: 20090506
  Serious: No
  Sender: FDA-Public Use
  Company Number: A0742466A

PATIENT
  Age: 44 Year
  Sex: Female

DRUGS (1)
  1. TYKERB [Suspect]
     Indication: DRUG USE FOR UNKNOWN INDICATION
     Dosage: 5TAB PER DAY
     Route: 048
     Dates: start: 20080724

REACTIONS (3)
  - FATIGUE [None]
  - PRURITUS [None]
  - RASH [None]
